FAERS Safety Report 16057820 (Version 1)
Quarter: 2019Q1

REPORT INFORMATION
  Report Type: Spontaneous
  Country: JP (occurrence: JP)
  Receive Date: 20190311
  Receipt Date: 20190311
  Transmission Date: 20190418
  Serious: Yes (Hospitalization)
  Sender: FDA-Public Use
  Company Number: JP-TEVA-2019-JP-1023255

PATIENT
  Age: 87 Year
  Sex: Male
  Weight: 49.3 kg

DRUGS (6)
  1. CILOSTAZOL. [Concomitant]
     Active Substance: CILOSTAZOL
     Indication: STENOSIS
     Dosage: 100 MILLIGRAM DAILY;
     Route: 065
  2. CILOSTAZOL. [Concomitant]
     Active Substance: CILOSTAZOL
     Indication: ARTERIOSCLEROSIS
  3. PREDNISOLONE. [Suspect]
     Active Substance: PREDNISOLONE
     Indication: FACTOR V INHIBITION
     Dosage: .5 MG/KG DAILY; FURTHER THE DOSE WAS REDUCED
     Route: 048
  4. UROKINASE [Suspect]
     Active Substance: UROKINASE
     Indication: ARTERIAL THROMBOSIS
     Dosage: VIA INSERTED FOUNTAIN CATHETER
     Route: 065
  5. LEVOFLOXACIN. [Concomitant]
     Active Substance: LEVOFLOXACIN
     Indication: PNEUMONIA
     Dosage: 250 MILLIGRAM DAILY;
     Route: 065
  6. CEFTRIAXONE. [Concomitant]
     Active Substance: CEFTRIAXONE
     Indication: PNEUMONIA
     Dosage: .5 GRAM DAILY; ON TWO DIALYSIS DAYS
     Route: 065

REACTIONS (3)
  - Necrosis [Not Recovered/Not Resolved]
  - Drug ineffective [Unknown]
  - Arterial thrombosis [Not Recovered/Not Resolved]
